FAERS Safety Report 12335397 (Version 1)
Quarter: 2016Q2

REPORT INFORMATION
  Report Type: Spontaneous
  Country: US (occurrence: US)
  Receive Date: 20160504
  Receipt Date: 20160504
  Transmission Date: 20160815
  Serious: Yes (Other)
  Sender: FDA-Public Use
  Company Number: US-ASTRAZENECA-2016SE35735

PATIENT
  Age: 44 Year
  Sex: Male
  Weight: 108.9 kg

DRUGS (24)
  1. DULOXETINE. [Concomitant]
     Active Substance: DULOXETINE
  2. ALDACTONE [Concomitant]
     Active Substance: SPIRONOLACTONE
     Indication: CARDIAC DISORDER
     Dosage: 25 MG,ONE TABLET BY MOUTH EVERY DAY,MEDICINE STARTED 4-5 YEARS AGO
     Route: 048
  3. BABY ASPIRIN [Concomitant]
     Active Substance: ASPIRIN
     Indication: ANTICOAGULANT THERAPY
     Dates: start: 1982
  4. VITAMINS NOS [Concomitant]
     Active Substance: VITAMINS
     Indication: EYE DISORDER
     Dosage: OVAL TABLET TWICE A DAY
     Dates: start: 2014
  5. DONEPEZIL HYDROCHLORIDE. [Concomitant]
     Active Substance: DONEPEZIL HYDROCHLORIDE
     Indication: PAIN IN EXTREMITY
     Dosage: ONE 10MG TABLET BY MOUTH AT BEDTIME
     Route: 048
     Dates: start: 201410, end: 201510
  6. WARFARIN [Concomitant]
     Active Substance: WARFARIN
     Dosage: 2.5MG TABLET ON SUNDAY, TUESDAY, WEDNESDAY, THURSDAY AND SATURDAY. 5MG TABLET ON MONDAY AND FRIDAY
     Route: 048
     Dates: start: 1982
  7. PREDNISONE. [Concomitant]
     Active Substance: PREDNISONE
     Indication: RHEUMATOID ARTHRITIS
     Route: 048
     Dates: start: 20160129
  8. DONEPEZIL HYDROCHLORIDE. [Concomitant]
     Active Substance: DONEPEZIL HYDROCHLORIDE
     Indication: CEREBRAL DISORDER
     Dosage: ONE 10MG TABLET BY MOUTH AT BEDTIME
     Route: 048
     Dates: start: 201410, end: 201510
  9. CRESTOR [Suspect]
     Active Substance: ROSUVASTATIN CALCIUM
     Indication: BLOOD CHOLESTEROL INCREASED
     Route: 048
  10. PREDNISONE. [Concomitant]
     Active Substance: PREDNISONE
     Indication: RHEUMATOID ARTHRITIS
     Route: 048
  11. PREDNISONE. [Concomitant]
     Active Substance: PREDNISONE
     Indication: PAIN IN EXTREMITY
     Route: 048
  12. PANTOPRAZOLE [Concomitant]
     Active Substance: PANTOPRAZOLE SODIUM
     Indication: ABDOMINAL DISCOMFORT
     Dosage: 20MG TABLET ONCE A DAY IN THE MORNING
     Dates: start: 1982
  13. DONEPEZIL HYDROCHLORIDE. [Concomitant]
     Active Substance: DONEPEZIL HYDROCHLORIDE
     Indication: PAIN IN EXTREMITY
     Dosage: ONE 10MG TABLET BY MOUTH AT BEDTIME
     Route: 048
     Dates: start: 201511
  14. HYDROCODEINE [Concomitant]
     Active Substance: DIHYDROCODEINE PHOSPHATE
     Indication: PAIN
     Dosage: 10/325M EVERY 6 HOURS
  15. MEMANTINE HYDROCHLORIDE. [Concomitant]
     Active Substance: MEMANTINE HYDROCHLORIDE
     Indication: DEMENTIA
     Route: 048
  16. DONEPEZIL HYDROCHLORIDE. [Concomitant]
     Active Substance: DONEPEZIL HYDROCHLORIDE
     Indication: CEREBRAL DISORDER
     Dosage: ONE 10MG TABLET BY MOUTH AT BEDTIME
     Route: 048
     Dates: start: 201511
  17. LISINOPRIL. [Suspect]
     Active Substance: LISINOPRIL
     Route: 048
     Dates: start: 1982
  18. TIKOSYN [Suspect]
     Active Substance: DOFETILIDE
     Dosage: 250MG, ONE CAPSULE BY MOUTH EVERY 12 HOURS
     Route: 048
  19. PREDNISONE. [Concomitant]
     Active Substance: PREDNISONE
     Indication: PAIN IN EXTREMITY
     Route: 048
     Dates: start: 20160129
  20. FUROSEMIDE. [Concomitant]
     Active Substance: FUROSEMIDE
     Indication: FLUID RETENTION
     Dates: start: 20160129
  21. FOLIC ACID. [Concomitant]
     Active Substance: FOLIC ACID
     Indication: RHEUMATIC DISORDER
     Dosage: 1MG TABLET ONE EVERY DAY
  22. TIKOSYN [Suspect]
     Active Substance: DOFETILIDE
     Dosage: 500MG, ONE CAPSULE BY MOUTH EVERY 12 HOURS
     Route: 048
  23. FUROSEMIDE. [Concomitant]
     Active Substance: FUROSEMIDE
     Indication: FLUID RETENTION
     Dates: start: 201510
  24. CARVEDILOL. [Concomitant]
     Active Substance: CARVEDILOL
     Indication: ARRHYTHMIA
     Dosage: 6.25MG TABLET TWICE A DAY IN THE MORNING AND NIGHT
     Dates: start: 1982

REACTIONS (7)
  - Myocardial infarction [Unknown]
  - Arrhythmia [Unknown]
  - Rheumatoid arthritis [Not Recovered/Not Resolved]
  - Blood cholesterol increased [Not Recovered/Not Resolved]
  - Glaucoma [Recovered/Resolved]
  - Dementia [Not Recovered/Not Resolved]
  - Chronic obstructive pulmonary disease [Not Recovered/Not Resolved]

NARRATIVE: CASE EVENT DATE: 1982
